FAERS Safety Report 4464574-7 (Version None)
Quarter: 2004Q3

REPORT INFORMATION
  Report Type: 
  Country: None (occurrence: None)
  Receive Date: 20040927
  Receipt Date: 20040915
  Transmission Date: 20050211
  Serious: Yes (Other)
  Sender: FDA-Public Use
  Company Number: 2004UW19372

PATIENT
  Age: 77 Year
  Sex: Female

DRUGS (6)
  1. SEROQUEL [Suspect]
     Indication: BIPOLAR DISORDER
     Dosage: 50 MG HS; PO
     Route: 048
     Dates: start: 20040429
  2. SEROQUEL [Suspect]
     Indication: BIPOLAR DISORDER
     Dosage: 75 MG BID; PO
     Route: 048
  3. LAMOTRIGINE [Concomitant]
  4. OLANZAPINE [Concomitant]
  5. HYDROXYUREA [Concomitant]
  6. EFFEXOR XR [Concomitant]

REACTIONS (3)
  - BONE MARROW DISORDER [None]
  - HAEMOGLOBIN DECREASED [None]
  - HAEMORRHAGE [None]
